FAERS Safety Report 14462321 (Version 1)
Quarter: 2018Q1

REPORT INFORMATION
  Report Type: Spontaneous
  Country: US (occurrence: US)
  Receive Date: 20180130
  Receipt Date: 20180130
  Transmission Date: 20180509
  Serious: No
  Sender: FDA-Public Use
  Company Number: US-BAUSCH-BL-2017-001222

PATIENT
  Age: 15 Year
  Sex: Male

DRUGS (1)
  1. MIGRANAL [Suspect]
     Active Substance: DIHYDROERGOTAMINE MESYLATE
     Indication: PRODUCT USED FOR UNKNOWN INDICATION
     Dosage: AS NEEDED
     Route: 065

REACTIONS (1)
  - Off label use [Unknown]
